FAERS Safety Report 21586051 (Version 5)
Quarter: 2023Q4

REPORT INFORMATION
  Report Type: Report from Study
  Country: BR (occurrence: BR)
  Receive Date: 20221111
  Receipt Date: 20231003
  Transmission Date: 20240109
  Serious: Yes (Hospitalization, Other)
  Sender: FDA-Public Use
  Company Number: BR-CELLTRION INC.-2022BR018865

PATIENT

DRUGS (3)
  1. INFLIXIMAB [Suspect]
     Active Substance: INFLIXIMAB
     Indication: Crohn^s disease
     Dosage: 3 AMPOULES EVERY 6 WEEKS
     Route: 042
     Dates: start: 20230214
  2. AZATHIOPRINE [Concomitant]
     Active Substance: AZATHIOPRINE
     Indication: Crohn^s disease
     Dosage: 2 PILLS PER DAY
     Route: 048
     Dates: start: 202105
  3. LEVOFLOXACIN [Concomitant]
     Active Substance: LEVOFLOXACIN
     Indication: Urinary tract infection
     Dosage: 1 PILL PER DAY FOR 7 DAYS
     Route: 048

REACTIONS (6)
  - Colostomy [Unknown]
  - Crohn^s disease [Unknown]
  - Urinary tract infection [Unknown]
  - Antibiotic therapy [Unknown]
  - Intentional dose omission [Unknown]
  - Intentional product use issue [Unknown]
